FAERS Safety Report 6976823-1 (Version None)
Quarter: 2010Q3

REPORT INFORMATION
  Report Type: 
  Country: None (occurrence: None)
  Receive Date: 20100910
  Receipt Date: 20100901
  Transmission Date: 20110219
  Serious: Yes (Hospitalization)
  Sender: FDA-Public Use
  Company Number: A0861568A

PATIENT
  Age: 49 Year
  Sex: Male
  Weight: 96.8 kg

DRUGS (1)
  1. PAZOPANIB [Suspect]
     Dosage: 800MG PER DAY
     Route: 048
     Dates: start: 20100204

REACTIONS (10)
  - BRAIN OEDEMA [None]
  - CONFUSIONAL STATE [None]
  - DEHYDRATION [None]
  - ENCEPHALOPATHY [None]
  - HYPOCALCAEMIA [None]
  - MENTAL STATUS CHANGES [None]
  - OEDEMA PERIPHERAL [None]
  - PYREXIA [None]
  - SOMNOLENCE [None]
  - SPEECH DISORDER [None]
